FAERS Safety Report 8565676 (Version 2)
Quarter: 2013Q2

REPORT INFORMATION
  Report Type: Spontaneous
  Country: US (occurrence: US)
  Receive Date: 20120516
  Receipt Date: 20130401
  Transmission Date: 20140414
  Serious: Yes (Other)
  Sender: FDA-Public Use
  Company Number: US-ASTRAZENECA-2012SE29790

PATIENT
  Age: 40 Year
  Sex: Female

DRUGS (1)
  1. SYMBICORT PMDI [Suspect]
     Route: 055

REACTIONS (6)
  - Seizure like phenomena [Unknown]
  - Oxygen saturation decreased [Unknown]
  - Convulsion [Unknown]
  - Asthma [Unknown]
  - General physical health deterioration [Unknown]
  - Drug dose omission [Unknown]
